FAERS Safety Report 12072001 (Version 3)
Quarter: 2016Q1

REPORT INFORMATION
  Report Type: Spontaneous
  Country: JP (occurrence: JP)
  Receive Date: 20160212
  Receipt Date: 20160317
  Transmission Date: 20160526
  Serious: Yes (Other)
  Sender: FDA-Public Use
  Company Number: JP-BRISTOL-MYERS SQUIBB COMPANY-BMS-2016-007382

PATIENT
  Sex: Male

DRUGS (5)
  1. EQUA [Concomitant]
     Active Substance: VILDAGLIPTIN
     Indication: DIABETES MELLITUS
     Dosage: 100 MG, UNK
     Route: 048
     Dates: start: 20150824
  2. LYRICA [Concomitant]
     Active Substance: PREGABALIN
     Indication: CERVICAL MYELOPATHY
     Dosage: 50 MG, UNK
     Route: 048
     Dates: start: 20150824
  3. SUNRYTHM [Concomitant]
     Active Substance: PILSICAINIDE HYDROCHLORIDE
     Indication: VENTRICULAR EXTRASYSTOLES
     Dosage: 50 MG, UNK
     Route: 048
     Dates: start: 20150824
  4. VITAMINS NOS [Concomitant]
     Active Substance: VITAMINS
     Indication: CERVICAL MYELOPATHY
     Dosage: 15 MG, UNK
     Route: 048
     Dates: start: 20150824
  5. METGLUCO [Suspect]
     Active Substance: METFORMIN HYDROCHLORIDE
     Indication: DIABETES MELLITUS
     Dosage: 250 MG, BID
     Route: 048
     Dates: start: 20150824, end: 20151116

REACTIONS (1)
  - Cardiac failure congestive [Recovered/Resolved]
